FAERS Safety Report 11434446 (Version 3)
Quarter: 2015Q3

REPORT INFORMATION
  Report Type: Spontaneous
  Country: US (occurrence: None)
  Receive Date: 20150831
  Receipt Date: 20150925
  Transmission Date: 20151125
  Serious: Yes (Hospitalization, Other)
  Sender: FDA-Public Use
  Company Number: US-MDT-ADR-2015-01658

PATIENT
  Age: 13 Year
  Sex: Female

DRUGS (2)
  1. GABLOFEN [Suspect]
     Active Substance: BACLOFEN
     Indication: MUSCLE SPASTICITY
     Dosage: 1246.2 MCG/DAY
  2. LIORESAL [Suspect]
     Active Substance: BACLOFEN
     Indication: MUSCLE SPASTICITY
     Dosage: 1246.2 MCG/DAY

REACTIONS (15)
  - Unevaluable event [None]
  - Pain [None]
  - Implant site extravasation [None]
  - Drug withdrawal syndrome [None]
  - Neuralgia [None]
  - Muscle spasticity [None]
  - Rhabdomyolysis [None]
  - Device kink [None]
  - Self-medication [None]
  - Overdose [None]
  - Somnolence [None]
  - Tremor [None]
  - Blood creatine phosphokinase increased [None]
  - Adhesion [None]
  - Medical device complication [None]
